FAERS Safety Report 4890520-8 (Version None)
Quarter: 2006Q1

REPORT INFORMATION
  Report Type: 
  Country: None (occurrence: None)
  Receive Date: 20060123
  Receipt Date: 20060113
  Transmission Date: 20060701
  Serious: Yes (Hospitalization)
  Sender: FDA-Public Use
  Company Number: 2006BI000694

PATIENT

DRUGS (7)
  1. AVONEX [Suspect]
     Indication: RELAPSING-REMITTING MULTIPLE SCLEROSIS
     Dosage: IM
     Route: 030
  2. IRON [Concomitant]
  3. M.V.I. [Concomitant]
  4. ASCORBIC ACID [Concomitant]
  5. VITAMIN E [Concomitant]
  6. CA++ [Concomitant]
  7. VITAMIN D [Concomitant]

REACTIONS (2)
  - GASTRIC BYPASS [None]
  - IRON DEFICIENCY ANAEMIA [None]
